FAERS Safety Report 14363960 (Version 1)
Quarter: 2018Q1

REPORT INFORMATION
  Report Type: Report from Study
  Country: US (occurrence: US)
  Receive Date: 20180108
  Receipt Date: 20180108
  Transmission Date: 20180509
  Serious: Yes (Other)
  Sender: FDA-Public Use
  Company Number: US-BAYER-2018-000771

PATIENT
  Age: 76 Year
  Sex: Male

DRUGS (1)
  1. STIVARGA [Suspect]
     Active Substance: REGORAFENIB
     Indication: GASTRIC CANCER
     Dosage: DAILY DOSE 160 MG, DAILY FOR 21 DAYS

REACTIONS (1)
  - Cardiac dysfunction [Recovered/Resolved]

NARRATIVE: CASE EVENT DATE: 20171101
